FAERS Safety Report 7423023-7 (Version None)
Quarter: 2011Q2

REPORT INFORMATION
  Report Type: 
  Country: None (occurrence: None)
  Receive Date: 20110419
  Receipt Date: 20110414
  Transmission Date: 20111010
  Serious: Yes (Other)
  Sender: FDA-Public Use
  Company Number: US-PFIZER INC-2011083013

PATIENT
  Sex: Female

DRUGS (3)
  1. CORDARONE [Suspect]
     Dosage: 200 MG, 1X/DAY
  2. CORDARONE [Suspect]
     Dosage: 200 MG, UNK
  3. CORDARONE [Suspect]
     Dosage: 400 MG, 2X/DAY

REACTIONS (6)
  - GAIT DISTURBANCE [None]
  - FATIGUE [None]
  - LUNG DISORDER [None]
  - DECREASED APPETITE [None]
  - TACHYCARDIA [None]
  - TREMOR [None]
